FAERS Safety Report 7261060-6 (Version None)
Quarter: 2011Q1

REPORT INFORMATION
  Report Type: 
  Country: None (occurrence: None)
  Receive Date: 20110130
  Receipt Date: 20101229
  Transmission Date: 20110831
  Serious: No
  Sender: FDA-Public Use
  Company Number: US-ABBOTT-10P-163-0694064-00

PATIENT
  Sex: Female
  Weight: 111.23 kg

DRUGS (13)
  1. METHOTREXATE [Concomitant]
     Indication: PSORIATIC ARTHROPATHY
     Route: 048
  2. ZOLPIDEM [Concomitant]
     Indication: INSOMNIA
     Route: 048
  3. DARVOCET-N 100 [Concomitant]
     Indication: ARTHRALGIA
     Dosage: OFF MARKET IN DEC 2010
     Route: 048
     Dates: end: 20101201
  4. VITAMIN B6 [Concomitant]
     Indication: VITAMIN SUPPLEMENTATION
     Route: 048
  5. VITAMIN D [Concomitant]
     Indication: VITAMIN SUPPLEMENTATION
     Dosage: WEEKLY
     Route: 048
  6. POTASSIUM CHLORIDE [Concomitant]
     Indication: MINERAL SUPPLEMENTATION
     Route: 048
  7. FOLIC ACID [Concomitant]
     Indication: VITAMIN SUPPLEMENTATION
     Route: 048
  8. VITAMIN B-12 [Concomitant]
     Indication: VITAMIN SUPPLEMENTATION
     Route: 048
  9. CITALOPRAM [Concomitant]
     Indication: DEPRESSION
     Route: 048
  10. MULTI-VITAMIN [Concomitant]
     Indication: VITAMIN SUPPLEMENTATION
     Route: 048
  11. HUMIRA [Suspect]
     Indication: PSORIATIC ARTHROPATHY
     Route: 058
     Dates: start: 20101201, end: 20101201
  12. HUMIRA [Suspect]
     Route: 058
     Dates: start: 20050101, end: 20101201
  13. FERROUS SULFATE SUPPLEMENT OTC [Concomitant]
     Indication: ANAEMIA
     Route: 048

REACTIONS (5)
  - DYSPHAGIA [None]
  - HYPERTENSION [None]
  - ARTHRITIS [None]
  - HEADACHE [None]
  - DYSPEPSIA [None]
